FAERS Safety Report 5815314-8 (Version None)
Quarter: 2008Q3

REPORT INFORMATION
  Report Type: 
  Country: None (occurrence: None)
  Receive Date: 20080718
  Receipt Date: 20080710
  Transmission Date: 20090109
  Serious: Yes (Death, Hospitalization)
  Sender: FDA-Public Use
  Company Number: EG-WYE-H04753108

PATIENT
  Sex: Male

DRUGS (9)
  1. TEMSIROLIMUS [Suspect]
     Indication: RENAL CELL CARCINOMA
     Dosage: 25 MG/ML EVERY 1 WK
     Route: 042
     Dates: start: 20070301, end: 20080201
  2. CIPRALEX [Concomitant]
     Route: 065
     Dates: start: 20071201, end: 20080101
  3. LYRICA [Concomitant]
     Route: 065
     Dates: start: 20071201, end: 20080101
  4. TARGOCID [Concomitant]
     Dosage: NOT PROVIDED
     Route: 065
     Dates: start: 20071201, end: 20080101
  5. AVELOX [Concomitant]
     Route: 065
     Dates: start: 20071201
  6. MAXIPIME [Concomitant]
     Dosage: NOT PROVIDED
     Route: 065
     Dates: start: 20071201, end: 20080101
  7. ROCEPHIN [Concomitant]
     Dosage: NOT PROVIDED
     Route: 065
     Dates: start: 20071201, end: 20080101
  8. BREXIN [Concomitant]
     Route: 065
     Dates: start: 20071201, end: 20080101
  9. TRAMAL [Concomitant]
     Route: 065
     Dates: start: 20071201, end: 20080101

REACTIONS (2)
  - INTERSTITIAL LUNG DISEASE [None]
  - PLEURAL EFFUSION [None]
